FAERS Safety Report 10549260 (Version 2)
Quarter: 2015Q1

REPORT INFORMATION
  Report Type: Spontaneous
  Country: US (occurrence: US)
  Receive Date: 20141028
  Receipt Date: 20150123
  Transmission Date: 20150720
  Serious: No
  Sender: FDA-Public Use
  Company Number: US-GLAXOSMITHKLINE-US2014GSK010125

PATIENT
  Age: 47 Year
  Sex: Female

DRUGS (4)
  1. FABIOR [Suspect]
     Active Substance: TAZAROTENE
     Dosage: UNK UNK, U
     Dates: start: 20140917
  2. ARMOUR THYROID [Concomitant]
     Active Substance: THYROID, PORCINE\THYROID, UNSPECIFIED
  3. FABIOR [Suspect]
     Active Substance: TAZAROTENE
     Indication: SKIN EXFOLIATION
     Dosage: 1 DF, QD
     Route: 061
     Dates: start: 20140901, end: 20140905
  4. SUBOXONE [Concomitant]
     Active Substance: BUPRENORPHINE HYDROCHLORIDE\NALOXONE HYDROCHLORIDE

REACTIONS (10)
  - Thermal burn [Recovering/Resolving]
  - Hyperhidrosis [Unknown]
  - Blister [Recovering/Resolving]
  - Skin texture abnormal [Not Recovered/Not Resolved]
  - Skin hyperpigmentation [Not Recovered/Not Resolved]
  - Blood pressure increased [Unknown]
  - Skin discolouration [Not Recovered/Not Resolved]
  - Rash [Recovering/Resolving]
  - Anxiety [Not Recovered/Not Resolved]
  - Local swelling [Not Recovered/Not Resolved]

NARRATIVE: CASE EVENT DATE: 20140903
